FAERS Safety Report 14964141 (Version 3)
Quarter: 2018Q3

REPORT INFORMATION
  Report Type: Spontaneous
  Country: US (occurrence: US)
  Receive Date: 20180601
  Receipt Date: 20180816
  Transmission Date: 20181010
  Serious: No
  Sender: FDA-Public Use
  Company Number: US-ALLERGAN-1828521US

PATIENT
  Age: 19 Year
  Sex: Female

DRUGS (1)
  1. TAYTULLA [Suspect]
     Active Substance: ETHINYL ESTRADIOL\NORETHINDRONE ACETATE
     Indication: CONTRACEPTION
     Dosage: UNK
     Route: 048
     Dates: start: 20180214

REACTIONS (3)
  - Drug ineffective [Unknown]
  - Product use issue [Unknown]
  - Pregnancy on oral contraceptive [Unknown]

NARRATIVE: CASE EVENT DATE: 20180214
